FAERS Safety Report 13566517 (Version 2)
Quarter: 2017Q2

REPORT INFORMATION
  Report Type: Report from Study
  Country: JP (occurrence: JP)
  Receive Date: 20170522
  Receipt Date: 20170523
  Transmission Date: 20170830
  Serious: Yes (Life-Threatening, Hospitalization, Other)
  Sender: FDA-Public Use
  Company Number: JP-CONCORDIA PHARMACEUTICALS INC.-GSH201705-002964

PATIENT
  Age: 63 Year
  Sex: Female

DRUGS (22)
  1. PREDNISOLONE. [Concomitant]
     Active Substance: PREDNISOLONE
     Dates: start: 20161208, end: 20170105
  2. BENIDIPINE [Concomitant]
     Active Substance: BENIDIPINE
  3. OMEPRAZOLE. [Concomitant]
     Active Substance: OMEPRAZOLE
     Dates: start: 20170105, end: 20170127
  4. PREDONINE [Concomitant]
     Active Substance: PREDNISOLONE
     Dates: start: 20170105, end: 20170126
  5. HEPARIN SODIUM. [Concomitant]
     Active Substance: HEPARIN SODIUM
     Dates: start: 20161229, end: 20170103
  6. PLAQUENIL [Suspect]
     Active Substance: HYDROXYCHLOROQUINE SULFATE
     Indication: SYSTEMIC LUPUS ERYTHEMATOSUS
     Route: 048
     Dates: start: 20161216, end: 20170105
  7. AZOSEMIDE [Concomitant]
     Active Substance: AZOSEMIDE
     Dates: start: 20161230, end: 20170101
  8. SOL-MELCORT [Concomitant]
     Active Substance: METHYLPREDNISOLONE SODIUM SUCCINATE
     Dates: start: 20161220, end: 20161222
  9. CORTICOSTEROID NOS [Suspect]
     Active Substance: CORTICOSTEROID NOS
     Indication: PRODUCT USED FOR UNKNOWN INDICATION
     Route: 065
  10. LANSOPRAZOLE. [Concomitant]
     Active Substance: LANSOPRAZOLE
     Dates: end: 20161215
  11. MICARDIS [Concomitant]
     Active Substance: TELMISARTAN
     Dates: end: 20161216
  12. SAMTIREL [Concomitant]
     Active Substance: ATOVAQUONE
     Dates: start: 20161229, end: 20170105
  13. IMURAN [Concomitant]
     Active Substance: AZATHIOPRINE
     Dates: end: 20161215
  14. LASIX [Concomitant]
     Active Substance: FUROSEMIDE
     Dates: start: 20161223, end: 20161224
  15. MIRCERA [Concomitant]
     Active Substance: METHOXY POLYETHYLENE GLYCOL-EPOETIN BETA
     Dates: start: 20161230, end: 20161230
  16. ALFACALCIDOL [Concomitant]
     Active Substance: ALFACALCIDOL
  17. ATORVASTATIN [Concomitant]
     Active Substance: ATORVASTATIN
     Dates: end: 20170105
  18. FORTEO [Concomitant]
     Active Substance: TERIPARATIDE
     Dates: start: 20161221, end: 20170106
  19. FOSRENOL [Concomitant]
     Active Substance: LANTHANUM CARBONATE
     Dates: start: 20161218, end: 20170105
  20. FUROSEMIDE. [Concomitant]
     Active Substance: FUROSEMIDE
     Dates: start: 20161225, end: 20161226
  21. TAKECAB [Concomitant]
     Active Substance: VONOPRAZAN FUMURATE
  22. WARFARIN [Concomitant]
     Active Substance: WARFARIN
     Dates: start: 20161231, end: 20170106

REACTIONS (4)
  - Cytomegalovirus infection [Recovered/Resolved]
  - Renal impairment [Recovering/Resolving]
  - Nausea [Not Recovered/Not Resolved]
  - Bacterial infection [Recovered/Resolved]

NARRATIVE: CASE EVENT DATE: 20161223
